FAERS Safety Report 14018277 (Version 2)
Quarter: 2017Q4

REPORT INFORMATION
  Report Type: Spontaneous
  Country: TW (occurrence: TW)
  Receive Date: 20170928
  Receipt Date: 20171024
  Transmission Date: 20180321
  Serious: Yes (Hospitalization, Other)
  Sender: FDA-Public Use
  Company Number: TW-BRISTOL-MYERS SQUIBB COMPANY-BMS-2017-085074

PATIENT
  Sex: Female
  Weight: 42.8 kg

DRUGS (1)
  1. OPDIVO [Suspect]
     Active Substance: NIVOLUMAB
     Indication: HYPOPHARYNGEAL CANCER
     Dosage: 3 MG/KG, Q2WK
     Route: 042
     Dates: start: 20170830

REACTIONS (3)
  - Pneumonia [Unknown]
  - Dyspepsia [Unknown]
  - Respiratory failure [Unknown]
